FAERS Safety Report 9855636 (Version 1)
Quarter: 2014Q1

REPORT INFORMATION
  Report Type: Spontaneous
  Country: US (occurrence: None)
  Receive Date: 20140129
  Receipt Date: 20140129
  Transmission Date: 20141002
  Serious: Yes (Death)
  Sender: FDA-Public Use
  Company Number: None

PATIENT
  Age: 35 Year
  Sex: Female
  Weight: 111 kg

DRUGS (18)
  1. PROPOFOL [Suspect]
     Indication: SEDATION
     Dosage: CONTINUOUS INFUSIO, INTRAVENOUS
     Route: 042
     Dates: start: 20131229, end: 20140102
  2. ALBUTEROL [Concomitant]
  3. CLINDAMYCIN [Concomitant]
  4. DEXAMETHASONE [Concomitant]
  5. HEPARIN [Concomitant]
  6. IPRATROPIUM [Concomitant]
  7. LEVAQUIN [Concomitant]
  8. FLAGYL [Concomitant]
  9. TAMIFLU [Concomitant]
  10. PROTONIX [Concomitant]
  11. VANC [Concomitant]
  12. CALCIUM GLUCONATE [Concomitant]
  13. NOVOLIN R [Concomitant]
  14. SODIUM BICARB [Concomitant]
  15. SPS [Concomitant]
  16. LEVOPHED DRIP [Concomitant]
  17. VASOPRESSIN [Concomitant]
  18. VERSED [Concomitant]

REACTIONS (7)
  - Hyperkalaemia [None]
  - Hypermagnesaemia [None]
  - Metabolic acidosis [None]
  - Electrocardiogram QRS complex prolonged [None]
  - Atrioventricular block first degree [None]
  - Propofol infusion syndrome [None]
  - Blood triglycerides increased [None]
